FAERS Safety Report 25765115 (Version 1)
Quarter: 2025Q3

REPORT INFORMATION
  Report Type: Report from Study
  Country: GB (occurrence: GB)
  Receive Date: 20250905
  Receipt Date: 20250905
  Transmission Date: 20251021
  Serious: Yes (Hospitalization, Other)
  Sender: CELLTRION
  Company Number: GB-CELLTRION INC.-2025GB031283

PATIENT

DRUGS (1)
  1. INFLIXIMAB-DYYB [Suspect]
     Active Substance: INFLIXIMAB-DYYB
     Indication: Colitis ulcerative
     Dosage: ONE PRE-FILLED PEN, EVERY TWO WEEKS
     Route: 058
     Dates: start: 202507

REACTIONS (11)
  - Lower respiratory tract infection [Unknown]
  - Tachycardia [Unknown]
  - Condition aggravated [Unknown]
  - Malaise [Unknown]
  - Lethargy [Unknown]
  - Nasopharyngitis [Unknown]
  - Headache [Unknown]
  - Insomnia [Unknown]
  - Pruritus [Unknown]
  - Arthralgia [Unknown]
  - Intentional dose omission [Unknown]
